FAERS Safety Report 8514428-1 (Version None)
Quarter: 2012Q3

REPORT INFORMATION
  Report Type: 
  Country: None (occurrence: None)
  Receive Date: 20120717
  Receipt Date: 20120330
  Transmission Date: 20120928
  Serious: Yes (Other)
  Sender: FDA-Public Use
  Company Number: ES-SANOFI-AVENTIS-2012SA022933

PATIENT
  Sex: Female

DRUGS (1)
  1. LANTUS [Suspect]
     Indication: TYPE 1 DIABETES MELLITUS
     Dosage: SOLUTION
     Route: 065

REACTIONS (2)
  - FOETAL DEATH [None]
  - FOETAL EXPOSURE DURING PREGNANCY [None]
